FAERS Safety Report 8103921-1 (Version None)
Quarter: 2012Q1

REPORT INFORMATION
  Report Type: 
  Country: None (occurrence: None)
  Receive Date: 20120201
  Receipt Date: 20120127
  Transmission Date: 20120608
  Serious: Yes (Other)
  Sender: FDA-Public Use
  Company Number: NL-PFIZER INC-2012025604

PATIENT
  Age: 80 Year
  Sex: Male
  Weight: 75 kg

DRUGS (8)
  1. CODEINE PHOSPHATE [Suspect]
     Dosage: 10 MG, 3X/DAY
  2. DESLORATADINE [Suspect]
     Dosage: 5 MG, 1X/DAY
  3. BUMETANIDE [Suspect]
     Dosage: 1 MG, 1X/DAY
  4. PANTOPRAZOLE [Suspect]
     Dosage: 40 MG, 1X/DAY
  5. CETOMACROGOL 1000/CETOSTEARYL ALCOHOL/CHLOROCRESOL/PARAFFIN/PETROLATUM [Suspect]
     Dosage: UNK
  6. METOPROLOL TARTRATE [Suspect]
     Dosage: 200 MG, 1X/DAY
  7. LIPITOR [Suspect]
     Dosage: 80 MG, 1X/DAY
  8. ESOMEPRAZOLE [Suspect]
     Dosage: 40 MG, 1X/DAY

REACTIONS (1)
  - MYOCARDIAL INFARCTION [None]
